FAERS Safety Report 12649520 (Version 1)
Quarter: 2016Q3

REPORT INFORMATION
  Report Type: Spontaneous
  Country: GB (occurrence: GB)
  Receive Date: 20160812
  Receipt Date: 20160812
  Transmission Date: 20161109
  Serious: Yes (Death)
  Sender: FDA-Public Use
  Company Number: GB-COVIS PHARMA S.A.R.L.-2016COV00063

PATIENT
  Age: 61 Year
  Sex: Female

DRUGS (2)
  1. RILUTEK [Suspect]
     Active Substance: RILUZOLE
     Dosage: 100 MG, 1X/DAY
     Route: 048
     Dates: start: 20160622, end: 20160719
  2. RILUTEK [Suspect]
     Active Substance: RILUZOLE
     Indication: SECONDARY PROGRESSIVE MULTIPLE SCLEROSIS
     Dosage: 50 MG, 1X/DAY
     Route: 048
     Dates: start: 20160524, end: 20160621

REACTIONS (2)
  - Myocardial ischaemia [Fatal]
  - Coronary artery thrombosis [Fatal]

NARRATIVE: CASE EVENT DATE: 20160719
